FAERS Safety Report 18609208 (Version 1)
Quarter: 2020Q4

REPORT INFORMATION
  Report Type: Spontaneous
  Country: US (occurrence: US)
  Receive Date: 20201214
  Receipt Date: 20201214
  Transmission Date: 20210114
  Serious: Yes (Other)
  Sender: FDA-Public Use
  Company Number: US-GW PHARMA-202012USGW04274

PATIENT

DRUGS (1)
  1. EPIDIOLEX [Suspect]
     Active Substance: CANNABIDIOL
     Indication: EPILEPSY
     Dosage: 200 MILLIGRAM, BID (FIRST SHIPPED ON 16 APR 2020)
     Route: 048
     Dates: start: 202004

REACTIONS (1)
  - Dependence on respirator [Not Recovered/Not Resolved]

NARRATIVE: CASE EVENT DATE: 2020
